FAERS Safety Report 14230770 (Version 3)
Quarter: 2018Q1

REPORT INFORMATION
  Report Type: Spontaneous
  Country: US (occurrence: US)
  Receive Date: 20171128
  Receipt Date: 20180123
  Transmission Date: 20180508
  Serious: No
  Sender: FDA-Public Use
  Company Number: US-PFIZER INC-2017505009

PATIENT
  Age: 71 Year
  Sex: Female
  Weight: 52.62 kg

DRUGS (3)
  1. ZYRTEC [Concomitant]
     Active Substance: CETIRIZINE HYDROCHLORIDE
     Indication: ANTIALLERGIC THERAPY
     Dosage: UNK, DAILY (TAKES IT EVERY DAY)
  2. ATROPINE SULFATE/DIPHENOXYLATE HYDROCHLORIDE [Suspect]
     Active Substance: ATROPINE SULFATE\DIPHENOXYLATE HYDROCHLORIDE
     Indication: GASTROINTESTINAL DISORDER
     Dosage: 1 DF, AS NEEDED, (ATROPINE 2.5 MG)
     Route: 048
     Dates: start: 201710
  3. BABY ASPIRIN [Concomitant]
     Active Substance: ASPIRIN
     Dosage: UNK, (TAKES ONE)

REACTIONS (6)
  - Dry throat [Recovered/Resolved]
  - Feeding disorder [Recovered/Resolved]
  - Choking sensation [Unknown]
  - Dysphagia [Unknown]
  - Pharyngeal oedema [Recovered/Resolved]
  - Aptyalism [Recovered/Resolved]

NARRATIVE: CASE EVENT DATE: 2017
